FAERS Safety Report 18315517 (Version 3)
Quarter: 2020Q4

REPORT INFORMATION
  Report Type: Spontaneous
  Country: US (occurrence: US)
  Receive Date: 20200926
  Receipt Date: 20201112
  Transmission Date: 20210113
  Serious: Yes (Other)
  Sender: FDA-Public Use
  Company Number: US-SERVIER-S20009413

PATIENT

DRUGS (12)
  1. ONCASPAR [Suspect]
     Active Substance: PEGASPARGASE
     Dosage: 3650 IU, ONE DOSE
     Route: 042
     Dates: start: 20200908, end: 20200908
  2. ONCASPAR [Suspect]
     Active Substance: PEGASPARGASE
     Dosage: UNK
     Route: 065
     Dates: start: 20200918, end: 20200918
  3. TN UNSPECIFIED [Concomitant]
     Indication: PREMEDICATION
     Dosage: 50 MG
     Route: 042
     Dates: start: 20200908
  4. ONCASPAR [Suspect]
     Active Substance: PEGASPARGASE
     Dosage: 3700 IU, ONE DOSE
     Route: 042
     Dates: start: 20201008, end: 20201008
  5. TN UNSPECIFIED [Concomitant]
     Indication: PREMEDICATION
     Dosage: UNK
     Route: 065
     Dates: start: 20201008
  6. TN UNSPECIFIED [Concomitant]
     Indication: SEDATION
     Dosage: 150 MG, OVER 3 MINS
     Route: 042
     Dates: start: 20200908
  7. TN UNSPECIFIED [Concomitant]
     Indication: PREMEDICATION
     Dosage: UNK
     Route: 065
     Dates: start: 20201008
  8. ONCASPAR [Suspect]
     Active Substance: PEGASPARGASE
     Dosage: UNK
     Dates: start: 20201018, end: 20201018
  9. ONCASPAR [Suspect]
     Active Substance: PEGASPARGASE
     Indication: ACUTE LYMPHOCYTIC LEUKAEMIA
     Dosage: UNK
     Route: 065
     Dates: start: 20200724, end: 20200724
  10. TN UNSPECIFIED [Concomitant]
     Indication: ACUTE LYMPHOCYTIC LEUKAEMIA
     Dosage: 70 MG, ONE DOSE
     Route: 037
     Dates: start: 20200908, end: 20200908
  11. TN UNSPECIFIED [Concomitant]
     Indication: PREMEDICATION
     Dosage: UNK
     Route: 065
     Dates: start: 20201008
  12. TN UNSPECIFIED [Concomitant]
     Indication: ACUTE LYMPHOCYTIC LEUKAEMIA
     Dosage: 2 MG, ONE DOSE
     Route: 042
     Dates: start: 20200908, end: 20200908

REACTIONS (2)
  - Vomiting [Recovered/Resolved]
  - Drug hypersensitivity [Recovered/Resolved]

NARRATIVE: CASE EVENT DATE: 20200908
